FAERS Safety Report 23194871 (Version 2)
Quarter: 2023Q4

REPORT INFORMATION
  Report Type: Spontaneous
  Country: US (occurrence: US)
  Receive Date: 20231117
  Receipt Date: 20231123
  Transmission Date: 20240110
  Serious: No
  Sender: FDA-Public Use
  Company Number: US-ELI_LILLY_AND_COMPANY-US202311008105

PATIENT
  Age: 75 Year
  Sex: Male

DRUGS (3)
  1. RETEVMO [Suspect]
     Active Substance: SELPERCATINIB
     Indication: Product used for unknown indication
     Dosage: 320 MG, UNKNOWN
     Route: 065
     Dates: start: 20220309
  2. RETEVMO [Suspect]
     Active Substance: SELPERCATINIB
     Dosage: 80 MG, UNKNOWN
     Route: 065
     Dates: start: 20230302
  3. UREA [Suspect]
     Active Substance: UREA
     Indication: Blood sodium decreased
     Dosage: UNK UNK, UNKNOWN
     Route: 065

REACTIONS (2)
  - Erosive oesophagitis [Not Recovered/Not Resolved]
  - Dysphonia [Not Recovered/Not Resolved]

NARRATIVE: CASE EVENT DATE: 20231109
